FAERS Safety Report 7592567-X (Version None)
Quarter: 2011Q3

REPORT INFORMATION
  Report Type: 
  Country: None (occurrence: None)
  Receive Date: 20110706
  Receipt Date: 20110630
  Transmission Date: 20111222
  Serious: Yes (Other)
  Sender: FDA-Public Use
  Company Number: AU-PFIZER INC-2011146855

PATIENT
  Sex: Male

DRUGS (1)
  1. REVATIO [Suspect]
     Indication: PULMONARY HYPERTENSION
     Dosage: UNK

REACTIONS (4)
  - BLINDNESS UNILATERAL [None]
  - HEMIANOPIA [None]
  - RETINAL EXUDATES [None]
  - OPTIC ISCHAEMIC NEUROPATHY [None]
